FAERS Safety Report 4964829-3 (Version None)
Quarter: 2006Q1

REPORT INFORMATION
  Report Type: 
  Country: None (occurrence: None)
  Receive Date: 20060331
  Receipt Date: 20060322
  Transmission Date: 20060701
  Serious: Yes (Hospitalization)
  Sender: FDA-Public Use
  Company Number: 200610699BWH

PATIENT
  Age: 68 Year
  Sex: Male
  Weight: 69.4003 kg

DRUGS (5)
  1. NEXAVAR [Suspect]
     Indication: METASTASES TO LUNG
     Dosage: 400 MG, BID, ORAL
     Route: 048
     Dates: start: 20060128
  2. NEXAVAR [Suspect]
     Indication: METASTATIC RENAL CELL CARCINOMA
     Dosage: 400 MG, BID, ORAL
     Route: 048
     Dates: start: 20060128
  3. ZIAC [Concomitant]
  4. AVAPRO [Concomitant]
  5. CLONIDINE [Concomitant]

REACTIONS (5)
  - DIZZINESS [None]
  - DYSPHONIA [None]
  - FATIGUE [None]
  - HEADACHE [None]
  - HYPERTENSION [None]
